FAERS Safety Report 6197576-3 (Version None)
Quarter: 2009Q2

REPORT INFORMATION
  Report Type: 
  Country: None (occurrence: None)
  Receive Date: 20090521
  Receipt Date: 20090520
  Transmission Date: 20091009
  Serious: Yes (Life-Threatening)
  Sender: FDA-Public Use
  Company Number: NL-ROXANE LABORATORIES, INC.-2009-DE-02687GD

PATIENT
  Age: 7 Year
  Sex: Male
  Weight: 27 kg

DRUGS (3)
  1. MORPHINE [Suspect]
     Indication: PROCEDURAL PAIN
     Dosage: CONTINUOUS INFUSION OF 0.5 MG/H, INCREASED TO 1.0 MG/H
     Route: 042
  2. MORPHINE [Suspect]
     Dosage: 1 MG/ML, BOLUS OF 1 ML, LOCKOUT-TIME OF 5 MIN
     Route: 042
  3. DROPERIDOL [Concomitant]
     Indication: ANTIEMETIC SUPPORTIVE CARE
     Route: 042

REACTIONS (4)
  - ACCIDENTAL OVERDOSE [None]
  - APNOEA [None]
  - RESPIRATORY FAILURE [None]
  - RESTLESSNESS [None]
